FAERS Safety Report 25232643 (Version 2)
Quarter: 2025Q2

REPORT INFORMATION
  Report Type: Report from Study
  Country: US (occurrence: US)
  Receive Date: 20250424
  Receipt Date: 20250520
  Transmission Date: 20250716
  Serious: Yes (Other)
  Sender: ABBVIE
  Company Number: US-ABBVIE-5905391

PATIENT
  Age: 75 Year
  Sex: Male

DRUGS (2)
  1. SKYRIZI [Suspect]
     Active Substance: RISANKIZUMAB-RZAA
     Indication: Psoriasis
     Route: 058
     Dates: start: 20240418
  2. SKYRIZI [Suspect]
     Active Substance: RISANKIZUMAB-RZAA
     Route: 058
     Dates: start: 20240516

REACTIONS (4)
  - Hernia [Recovered/Resolved]
  - Psoriasis [Not Recovered/Not Resolved]
  - Scar [Unknown]
  - Incision site erythema [Not Recovered/Not Resolved]

NARRATIVE: CASE EVENT DATE: 20240516
